FAERS Safety Report 5449775-3 (Version None)
Quarter: 2007Q3

REPORT INFORMATION
  Report Type: 
  Country: None (occurrence: None)
  Receive Date: 20070910
  Receipt Date: 20070910
  Transmission Date: 20080115
  Serious: Yes (Hospitalization)
  Sender: FDA-Public Use
  Company Number: None

PATIENT
  Age: 56 Year
  Sex: Male
  Weight: 107 kg

DRUGS (1)
  1. OXYBUTYNIN CHLORIDE [Suspect]
     Indication: NEUROGENIC BLADDER
     Dosage: 5MG BID PO
     Route: 048
     Dates: start: 20070430, end: 20070430

REACTIONS (1)
  - DYSPNOEA [None]
